FAERS Safety Report 9904835 (Version 2)
Quarter: 2014Q1

REPORT INFORMATION
  Report Type: Spontaneous
  Country: US (occurrence: None)
  Receive Date: 20140210
  Receipt Date: 20140305
  Transmission Date: 20141002
  Serious: Yes (Hospitalization)
  Sender: FDA-Public Use
  Company Number: SYM-2014-16724

PATIENT
  Age: 71 Year
  Sex: Female

DRUGS (1)
  1. XENAZINE (12.5 MILLIGRAM, TABLET) (TETRABENAZINE) [Suspect]
     Indication: CHOREA
     Dosage: 12.5MG, 2 IN 1 D, ORAL
     Route: 048
     Dates: start: 20140101

REACTIONS (1)
  - Gastrointestinal disorder [None]
